FAERS Safety Report 8447228 (Version 3)
Quarter: 2012Q4

REPORT INFORMATION
  Report Type: 
  Country: JP (occurrence: JP)
  Receive Date: 20120308
  Receipt Date: 20120911
  Transmission Date: 20130627
  Serious: Yes (Hospitalization, Disabling)
  Sender: FDA-Public Use
  Company Number: JP-SANOFI-AVENTIS-2012SA015282

PATIENT
  Age: 71 Year
  Sex: Female
  Weight: 55 kg

DRUGS (8)
  1. ZOLPIDEM TARTRATE [Suspect]
     Indication: SLEEP LOSS
     Route: 048
     Dates: start: 20100826
  2. PLAVIX [Suspect]
     Indication: CEREBRAL INFARCTION
     Route: 048
     Dates: start: 20100325, end: 20111111
  3. PRAVASTATIN [Concomitant]
     Indication: LIPID METABOLISM DISORDER
     Route: 048
     Dates: end: 20111111
  4. ALLOPURINOL [Concomitant]
     Indication: HYPERURICEMIA
     Route: 048
     Dates: end: 20120304
  5. CARDENALIN [Concomitant]
     Indication: HYPERTENSION
     Route: 048
     Dates: start: 20100311, end: 20111111
  6. UNIPHYL [Concomitant]
     Indication: ASTHMA
     Route: 048
     Dates: start: 20110509, end: 20120229
  7. FLUTICASONE PROPIONATE [Concomitant]
     Indication: ASTHMA
     Route: 055
     Dates: start: 20110516
  8. ITAVASTATIN [Concomitant]
     Indication: LIPID METABOLISM DISORDER
     Route: 048
     Dates: start: 20111125

REACTIONS (1)
  - Thalamus haemorrhage [Recovered/Resolved with Sequelae]
